FAERS Safety Report 11458674 (Version 1)
Quarter: 2015Q3

REPORT INFORMATION
  Report Type: Spontaneous
  Country: DE (occurrence: DE)
  Receive Date: 20150904
  Receipt Date: 20150904
  Transmission Date: 20151125
  Serious: Yes (Hospitalization)
  Sender: FDA-Public Use
  Company Number: DE-MYLANLABS-2015M1029646

PATIENT

DRUGS (4)
  1. AMISULPRIDE [Suspect]
     Active Substance: AMISULPRIDE
     Indication: ACUTE PSYCHOSIS
     Dosage: 200 MG/DAY, ON DAY 14
     Route: 065
  2. FLUNITRAZEPAM [Concomitant]
     Active Substance: FLUNITRAZEPAM
     Dosage: 1 MG/DAY
     Route: 065
  3. OLANZAPINE. [Suspect]
     Active Substance: OLANZAPINE
     Indication: ACUTE PSYCHOSIS
     Dosage: TITRATED UP TO 30 MG/DAY
     Route: 065
  4. AMISULPRIDE [Suspect]
     Active Substance: AMISULPRIDE
     Dosage: RAISED GRADUALLY TO 1200 MG/DAY
     Route: 065

REACTIONS (3)
  - Blood creatine phosphokinase increased [Recovering/Resolving]
  - Transaminases increased [Unknown]
  - Myopathy [Unknown]
